FAERS Safety Report 5334189-7 (Version None)
Quarter: 2007Q2

REPORT INFORMATION
  Report Type: 
  Country: None (occurrence: None)
  Receive Date: 20070523
  Receipt Date: 20070523
  Transmission Date: 20071010
  Serious: Yes (Other)
  Sender: FDA-Public Use
  Company Number: None

PATIENT
  Age: 40 Year
  Sex: Male

DRUGS (1)
  1. PANDEL [Suspect]
     Dosage: TOPICAL STARTED 6 WKS AGO, STOP 2 WK
     Route: 061

REACTIONS (3)
  - CAUSTIC INJURY [None]
  - CONDITION AGGRAVATED [None]
  - EXPIRED DRUG ADMINISTERED [None]
